FAERS Safety Report 14907086 (Version 2)
Quarter: 2018Q2

REPORT INFORMATION
  Report Type: Spontaneous
  Country: GB (occurrence: GB)
  Receive Date: 20180517
  Receipt Date: 20180529
  Transmission Date: 20180711
  Serious: Yes (Disabling, Other)
  Sender: FDA-Public Use
  Company Number: GB-TEVA-2018-GB-893864

PATIENT
  Age: 15 Year
  Sex: Female

DRUGS (1)
  1. VALPROATE SODIUM. [Suspect]
     Active Substance: VALPROATE SODIUM
     Route: 064

REACTIONS (4)
  - Foetal exposure during pregnancy [Unknown]
  - Learning disorder [Unknown]
  - Autism spectrum disorder [Unknown]
  - Incontinence [Unknown]
